FAERS Safety Report 24085763 (Version 5)
Quarter: 2025Q2

REPORT INFORMATION
  Report Type: Spontaneous
  Country: US (occurrence: US)
  Receive Date: 20240712
  Receipt Date: 20250527
  Transmission Date: 20250716
  Serious: No
  Sender: PFIZER
  Company Number: US-PFIZER INC-202400211475

PATIENT
  Age: 49 Year
  Sex: Male
  Weight: 61.678 kg

DRUGS (3)
  1. SOMAVERT [Suspect]
     Active Substance: PEGVISOMANT
     Indication: Acromegaly
     Dosage: 40 MG, WEEKLY (ONCE A WEEK)
     Route: 058
     Dates: start: 20240614
  2. SOMAVERT [Suspect]
     Active Substance: PEGVISOMANT
     Dosage: 40 MG, WEEKLY (ONCE A WEEK)
     Route: 058
     Dates: start: 20240614
  3. SOMAVERT [Suspect]
     Active Substance: PEGVISOMANT

REACTIONS (4)
  - Injection site rash [Recovered/Resolved]
  - Injection site pruritus [Unknown]
  - Off label use [Unknown]
  - Product communication issue [Unknown]

NARRATIVE: CASE EVENT DATE: 20240614
